FAERS Safety Report 22610166 (Version 5)
Quarter: 2024Q3

REPORT INFORMATION
  Report Type: Spontaneous
  Country: US (occurrence: US)
  Receive Date: 20230616
  Receipt Date: 20240821
  Transmission Date: 20241017
  Serious: Yes (Death, Hospitalization)
  Sender: PFIZER
  Company Number: US-PFIZER INC-US-GBT-021529

PATIENT
  Age: 51 Year
  Sex: Female
  Weight: 48.53 kg

DRUGS (5)
  1. OXBRYTA [Suspect]
     Active Substance: VOXELOTOR
     Indication: Haemoglobin abnormal
     Dosage: 1500 MG, 1X/DAY (500MG 3 TABLETS ONCE DAILY)
     Route: 048
     Dates: start: 20220929
  2. OXBRYTA [Suspect]
     Active Substance: VOXELOTOR
     Dosage: 1500 MG, 1X/DAY
     Route: 048
     Dates: start: 202210
  3. OXBRYTA [Suspect]
     Active Substance: VOXELOTOR
     Dosage: 1500 MG, DAILY
  4. OXBRYTA [Suspect]
     Active Substance: VOXELOTOR
     Dosage: 1500 MG, 1X/DAY
     Route: 048
  5. LISINOPRIL [Concomitant]
     Active Substance: LISINOPRIL
     Indication: Renal impairment
     Dosage: 2.5 MG, 1X/DAY
     Route: 048
     Dates: start: 202304

REACTIONS (10)
  - Death [Fatal]
  - Haemoglobin decreased [Recovering/Resolving]
  - Blood potassium increased [Recovering/Resolving]
  - Sickle cell anaemia with crisis [Unknown]
  - Fatigue [Not Recovered/Not Resolved]
  - Dyspnoea [Not Recovered/Not Resolved]
  - Diarrhoea [Recovered/Resolved]
  - Eczema [Not Recovered/Not Resolved]
  - Sinusitis [Recovered/Resolved]
  - Pain [Unknown]

NARRATIVE: CASE EVENT DATE: 20230204
